FAERS Safety Report 5728558-0 (Version None)
Quarter: 2008Q2

REPORT INFORMATION
  Report Type: 
  Country: None (occurrence: None)
  Receive Date: 20080506
  Receipt Date: 20080428
  Transmission Date: 20081010
  Serious: Yes (Hospitalization)
  Sender: FDA-Public Use
  Company Number: PHRM2008FR01405

PATIENT
  Age: 47 Year
  Sex: Male
  Weight: 105 kg

DRUGS (3)
  1. TEGRETOL [Suspect]
     Indication: EPILEPSY
     Dosage: 800 MG DAILY
     Route: 048
     Dates: start: 19900101
  2. VALIUM [Concomitant]
  3. LORAZEPAM [Concomitant]

REACTIONS (4)
  - ANGIOEDEMA [None]
  - DYSPHONIA [None]
  - MECHANICAL VENTILATION [None]
  - PHARYNGEAL NEOPLASM [None]
